FAERS Safety Report 5533024-1 (Version None)
Quarter: 2007Q4

REPORT INFORMATION
  Report Type: 
  Country: None (occurrence: None)
  Receive Date: 20071204
  Receipt Date: 20071120
  Transmission Date: 20080405
  Serious: Yes (Hospitalization)
  Sender: FDA-Public Use
  Company Number: TW-RANBAXY-2007RR-11631

PATIENT

DRUGS (4)
  1. METFORMIN 500MG TABLETS [Suspect]
     Indication: TYPE 2 DIABETES MELLITUS
     Dosage: 500 MG, BID
  2. GLYBURIDE [Concomitant]
     Dosage: UNK
     Dates: start: 19980101
  3. INSULIN [Concomitant]
  4. VITAMIN B-12 [Concomitant]

REACTIONS (4)
  - ANAEMIA MEGALOBLASTIC [None]
  - DEEP VEIN THROMBOSIS [None]
  - HYPERHOMOCYSTEINAEMIA [None]
  - VITAMIN B12 DEFICIENCY [None]
